FAERS Safety Report 25573310 (Version 1)
Quarter: 2025Q3

REPORT INFORMATION
  Report Type: Spontaneous
  Country: US (occurrence: US)
  Receive Date: 20250717
  Receipt Date: 20250717
  Transmission Date: 20251020
  Serious: Yes (Other)
  Sender: AMGEN
  Company Number: US-AMGEN-USASP2025138065

PATIENT

DRUGS (1)
  1. BEVACIZUMAB [Suspect]
     Active Substance: BEVACIZUMAB
     Indication: Glioblastoma
     Route: 065

REACTIONS (21)
  - Seizure [Unknown]
  - Emotional distress [Unknown]
  - Motor dysfunction [Unknown]
  - Grief reaction [Unknown]
  - Confusional state [Unknown]
  - Abnormal behaviour [Unknown]
  - Personality change [Unknown]
  - Gait disturbance [Unknown]
  - Visual impairment [Unknown]
  - Amnesia [Unknown]
  - Tremor [Unknown]
  - Hypoaesthesia [Unknown]
  - Adverse event [Unknown]
  - Communication disorder [Unknown]
  - Dizziness [Unknown]
  - Somnolence [Unknown]
  - Headache [Unknown]
  - Fatigue [Unknown]
  - Asthenia [Unknown]
  - Nausea [Unknown]
  - Vomiting [Unknown]
